FAERS Safety Report 20880489 (Version 4)
Quarter: 2022Q2

REPORT INFORMATION
  Report Type: Spontaneous
  Country: CA (occurrence: CA)
  Receive Date: 20220526
  Receipt Date: 20220630
  Transmission Date: 20220721
  Serious: Yes (Other)
  Sender: FDA-Public Use
  Company Number: CA-PFIZER INC-202200506362

PATIENT
  Age: 63 Year
  Sex: Male

DRUGS (2)
  1. ABRILADA [Suspect]
     Active Substance: ADALIMUMAB-AFZB
     Dosage: 40 MG, EVERY 2 WEEK, ALTERNATING WITH 80 MG THE OTHER WEEK
     Route: 058
     Dates: start: 20220430, end: 202205
  2. ABRILADA [Suspect]
     Active Substance: ADALIMUMAB-AFZB
     Dosage: 80 MG,EVERY 2 WEEKS, ALTERNATING WITH 40 MG THE OTHER WEEK
     Route: 058
     Dates: start: 20220430, end: 202205

REACTIONS (3)
  - Blindness [Recovered/Resolved]
  - Off label use [Unknown]
  - Off label use [Unknown]

NARRATIVE: CASE EVENT DATE: 20220430
